FAERS Safety Report 19728828 (Version 3)
Quarter: 2022Q2

REPORT INFORMATION
  Report Type: Spontaneous
  Country: US (occurrence: US)
  Receive Date: 20210820
  Receipt Date: 20220622
  Transmission Date: 20220720
  Serious: Yes (Hospitalization)
  Sender: FDA-Public Use
  Company Number: US-PFIZER INC-202101035795

PATIENT
  Age: 84 Year
  Sex: Male

DRUGS (3)
  1. VYNDAMAX [Suspect]
     Active Substance: TAFAMIDIS
     Dosage: 61 MG
     Dates: start: 20170101
  2. VYNDAMAX [Suspect]
     Active Substance: TAFAMIDIS
     Dosage: 61 MG, 2X/DAY
     Route: 048
     Dates: start: 20210211
  3. VYNDAMAX [Suspect]
     Active Substance: TAFAMIDIS
     Dosage: 61 MG

REACTIONS (7)
  - COVID-19 [Unknown]
  - Product dose omission issue [Unknown]
  - Intentional overdose [Unknown]
  - Sensitive skin [Unknown]
  - Contusion [Unknown]
  - Lacrimation increased [Unknown]
  - Memory impairment [Unknown]
